FAERS Safety Report 23673271 (Version 1)
Quarter: 2024Q1

REPORT INFORMATION
  Report Type: Spontaneous
  Country: CH (occurrence: CH)
  Receive Date: 20240326
  Receipt Date: 20240326
  Transmission Date: 20240410
  Serious: Yes (Life-Threatening, Hospitalization, Other)
  Sender: FDA-Public Use
  Company Number: None

PATIENT
  Age: 64 Year
  Sex: Female
  Weight: 61.8 kg

DRUGS (12)
  1. METHADONE HYDROCHLORIDE [Suspect]
     Active Substance: METHADONE HYDROCHLORIDE
     Indication: Somatic symptom disorder
     Dosage: METHADONE LIQUID 5 MG/1 ML, TID
     Route: 048
     Dates: start: 20240122, end: 20240208
  2. AMITRIPTYLINE HYDROCHLORIDE [Suspect]
     Active Substance: AMITRIPTYLINE HYDROCHLORIDE
     Indication: Somatic symptom disorder
     Dosage: 25 MG, QD (0-0-1)
     Route: 048
     Dates: start: 20240122
  3. AMITRIPTYLINE HYDROCHLORIDE [Suspect]
     Active Substance: AMITRIPTYLINE HYDROCHLORIDE
     Dosage: 50 MG, QD (INCREASED TO 0-0-2 )
     Route: 048
     Dates: start: 20240130, end: 20240208
  4. AMITRIPTYLINE HYDROCHLORIDE [Suspect]
     Active Substance: AMITRIPTYLINE HYDROCHLORIDE
     Dosage: 12.5 MG, QD
     Route: 048
     Dates: start: 20240219
  5. ENOXAPARIN SODIUM [Suspect]
     Active Substance: ENOXAPARIN SODIUM
     Dosage: 40 MG, QD (0-0-1-0)
     Route: 058
  6. METAMIZOLE [Suspect]
     Active Substance: METAMIZOLE
     Dosage: 5500 MG/1 ML (500 MG = 20 GTT), QID (20-20-20-20 (20))
     Route: 048
  7. DAFALGAN [Concomitant]
     Active Substance: ACETAMINOPHEN
     Dosage: IF NECESSARY, QID
     Route: 048
  8. CREON [Concomitant]
     Active Substance: PANCRELIPASE AMYLASE\PANCRELIPASE LIPASE\PANCRELIPASE PROTEASE
     Dosage: 25000 , TID (0-1-1-1)
     Route: 048
  9. PEPTAMEN [Concomitant]
     Dosage: PEPTAMEN (NUTRITION) VIA THE PEG TUBE DAILY FROM 8H TO 22H
  10. LAXIPEG [Concomitant]
     Dosage: 10 G, QD (LAXIPEG POWDER 10 G AROMA-FREE (MACROGOL 4000) 1-0-0-0)
  11. TRAZODONE HYDROCHLORIDE [Concomitant]
     Active Substance: TRAZODONE HYDROCHLORIDE
     Indication: Depression
     Dosage: 150 MG, QD (ENTERALLY VIA TUBE 0-0-0-1)
  12. ZOLPIDEM TARTRATE [Concomitant]
     Active Substance: ZOLPIDEM TARTRATE
     Indication: Depression
     Dosage: 10 MG, QD (0-0-0-1)
     Route: 048

REACTIONS (3)
  - Toxicity to various agents [Recovered/Resolved]
  - Liver disorder [Recovered/Resolved]
  - Gastrointestinal haemorrhage [Recovered/Resolved]

NARRATIVE: CASE EVENT DATE: 20240207
